FAERS Safety Report 18043523 (Version 1)
Quarter: 2020Q3

REPORT INFORMATION
  Report Type: Spontaneous
  Country: US (occurrence: US)
  Receive Date: 20200717
  Receipt Date: 20200717
  Transmission Date: 20201103
  Serious: Yes (Other)
  Sender: FDA-Public Use
  Company Number: None

PATIENT
  Age: 36 Year
  Sex: Female
  Weight: 54 kg

DRUGS (3)
  1. CONCERTA [Suspect]
     Active Substance: METHYLPHENIDATE HYDROCHLORIDE
     Indication: ATTENTION DEFICIT HYPERACTIVITY DISORDER
     Dosage: ?
     Route: 048
     Dates: start: 20200716, end: 20200717
  2. ZYRTEC [Concomitant]
     Active Substance: CETIRIZINE HYDROCHLORIDE
  3. LANSOPRAZOLE. [Concomitant]
     Active Substance: LANSOPRAZOLE

REACTIONS (11)
  - Heart rate increased [None]
  - Fatigue [None]
  - Product substitution issue [None]
  - Blood pressure diastolic increased [None]
  - Overdose [None]
  - Mydriasis [None]
  - Dyspnoea [None]
  - Insomnia [None]
  - Anxiety [None]
  - Palpitations [None]
  - Condition aggravated [None]

NARRATIVE: CASE EVENT DATE: 20200716
